FAERS Safety Report 10200724 (Version 1)
Quarter: 2014Q2

REPORT INFORMATION
  Report Type: Spontaneous
  Country: CN (occurrence: CN)
  Receive Date: 20140528
  Receipt Date: 20140528
  Transmission Date: 20141212
  Serious: Yes (Other)
  Sender: FDA-Public Use
  Company Number: CN-ROCHE-1407974

PATIENT
  Age: 1 Year
  Sex: Female
  Weight: 9 kg

DRUGS (1)
  1. ROCEPHIN [Suspect]
     Indication: MENINGITIS
     Dosage: 5%GLUCOSE INJECTION 80ML (BATCH NO. L113022006)
     Route: 041
     Dates: start: 20130430, end: 20130430

REACTIONS (1)
  - Haemolysis [Recovering/Resolving]
